FAERS Safety Report 4918143-2 (Version None)
Quarter: 2006Q1

REPORT INFORMATION
  Report Type: 
  Country: None (occurrence: None)
  Receive Date: 20060221
  Receipt Date: 20051207
  Transmission Date: 20060701
  Serious: Yes (Hospitalization)
  Sender: FDA-Public Use
  Company Number: US-MERCK-0512USA01362

PATIENT
  Age: 73 Year
  Sex: Male
  Weight: 58 kg

DRUGS (12)
  1. VIOXX [Suspect]
     Route: 048
  2. DIPHENHYDRAMINE HYDROCHLORIDE [Concomitant]
     Route: 048
  3. METOCLOPRAMIDE [Concomitant]
     Route: 048
  4. AMITRIPTYLINE HYDROCHLORIDE [Concomitant]
     Route: 048
  5. FELODIPINE [Concomitant]
     Route: 048
  6. ATENOLOL [Concomitant]
     Route: 048
  7. LOVASTATIN [Concomitant]
     Route: 048
  8. CIMETIDINE [Concomitant]
     Route: 048
  9. ALBUTEROL [Concomitant]
     Route: 055
  10. IPRATROPIUM BROMIDE [Concomitant]
     Route: 055
  11. NITROGLYCERIN [Concomitant]
     Route: 060
  12. ASPIRIN [Concomitant]
     Route: 048

REACTIONS (28)
  - ABDOMINAL DISCOMFORT [None]
  - ABDOMINAL PAIN [None]
  - ABDOMINAL PAIN UPPER [None]
  - ANGINA UNSTABLE [None]
  - ARTERIOSCLEROSIS CORONARY ARTERY [None]
  - ASTHENIA [None]
  - BACK PAIN [None]
  - BRADYCARDIA [None]
  - CAROTID SINUS SYNDROME [None]
  - CEREBROVASCULAR ACCIDENT [None]
  - CHEST PAIN [None]
  - CORONARY ARTERY DISEASE [None]
  - DIARRHOEA [None]
  - FALL [None]
  - GALLBLADDER DISORDER [None]
  - GASTRIC HAEMORRHAGE [None]
  - GASTROOESOPHAGEAL REFLUX DISEASE [None]
  - HAEMATEMESIS [None]
  - HYPOKALAEMIA [None]
  - INTESTINAL OBSTRUCTION [None]
  - MYOCARDIAL ISCHAEMIA [None]
  - NAUSEA [None]
  - OSTEOARTHRITIS [None]
  - PANCREATITIS CHRONIC [None]
  - PNEUMONIA [None]
  - SINUS BRADYCARDIA [None]
  - TOOTH LOSS [None]
  - WEIGHT DECREASED [None]
